FAERS Safety Report 7687069-6 (Version None)
Quarter: 2011Q3

REPORT INFORMATION
  Report Type: 
  Country: None (occurrence: None)
  Receive Date: 20110816
  Receipt Date: 20110808
  Transmission Date: 20111222
  Serious: Yes (Hospitalization)
  Sender: FDA-Public Use
  Company Number: US-US-EMD SERONO, INC.-7076018

PATIENT
  Sex: Female

DRUGS (9)
  1. MDX-1338 [Suspect]
     Indication: ACUTE MYELOID LEUKAEMIA
     Dates: start: 20110621
  2. ETOPOSIDE [Suspect]
     Indication: ACUTE MYELOID LEUKAEMIA
     Dates: start: 20110629, end: 20110703
  3. PREDNISONE [Concomitant]
  4. ACYCLOVIR [Concomitant]
     Dates: start: 20110310
  5. NOVANTRONE [Suspect]
     Indication: ACUTE MYELOID LEUKAEMIA
     Dates: start: 20110629, end: 20110703
  6. POSACONAZOLE [Concomitant]
     Dates: end: 20110708
  7. DAPSONE [Concomitant]
  8. LEVAQUIN [Concomitant]
     Dates: start: 20110310, end: 20110708
  9. CYTARABINE [Suspect]
     Indication: ACUTE MYELOID LEUKAEMIA
     Dates: start: 20110629, end: 20110703

REACTIONS (2)
  - MUCOSAL INFLAMMATION [None]
  - FEBRILE NEUTROPENIA [None]
